FAERS Safety Report 19586769 (Version 1)
Quarter: 2021Q3

REPORT INFORMATION
  Report Type: Spontaneous
  Country: CA (occurrence: CA)
  Receive Date: 20210721
  Receipt Date: 20210721
  Transmission Date: 20211014
  Serious: Yes (Disabling)
  Sender: FDA-Public Use
  Company Number: CA-LEO PHARMA-337787

PATIENT
  Age: 17 Year
  Sex: Male
  Weight: 82 kg

DRUGS (12)
  1. BUPROPION HYDROCHLORIDE. [Concomitant]
     Active Substance: BUPROPION HYDROCHLORIDE
     Indication: DEPRESSION
     Dosage: 150 MG, 1 IN 1 D
     Dates: start: 20210423
  2. EUCERIN LOTION [Concomitant]
     Indication: DRY SKIN PROPHYLAXIS
     Dosage: 2 DERMATOLOGICAL PREPARATION (1 DERMATOLOGICAL PREPARATION, 2 IN 1 D)
     Route: 061
     Dates: start: 2017
  3. TARO?MOMETASONE [Concomitant]
     Indication: DERMATITIS ATOPIC
     Dosage: 1 APPLICATION AT BEDTIME (1 DERMATOLOGICAL PREPARATION,1 IN 1 D)
     Route: 061
     Dates: start: 20200616
  4. FINACEA [Concomitant]
     Active Substance: AZELAIC ACID
     Indication: ACNE
     Dosage: 1 APPLICATION AT BEDTIME
     Route: 061
     Dates: start: 20191203
  5. PROTOPIC [Suspect]
     Active Substance: TACROLIMUS
     Indication: DERMATITIS ATOPIC
     Dates: start: 20190618, end: 20190709
  6. PROTOPIC [Suspect]
     Active Substance: TACROLIMUS
     Indication: DERMATITIS ATOPIC
     Dates: start: 20180508, end: 20190512
  7. BETADERM [Concomitant]
     Active Substance: BETAMETHASONE VALERATE
     Indication: DERMATITIS ATOPIC
     Dosage: 1 DERMATOLOGICAL PREPARATION (1 DERMATOLOGICAL PREPARATION,1 IN 1 D)
     Route: 061
     Dates: start: 20191203
  8. UPADACITINIB [Suspect]
     Active Substance: UPADACITINIB
     Indication: DERMATITIS ATOPIC
     Dosage: 15 MG,1 IN 1 D
     Route: 048
     Dates: start: 20191007, end: 20210611
  9. PROTOPIC [Suspect]
     Active Substance: TACROLIMUS
     Indication: DERMATITIS ATOPIC
     Dosage: 1 DERMATOLOGICAL PREPARATION
     Route: 061
     Dates: start: 20200616
  10. CETIRIZINE [Concomitant]
     Active Substance: CETIRIZINE HYDROCHLORIDE
     Indication: DERMATITIS ATOPIC
  11. PREDNISOLONE ACETATE. [Concomitant]
     Active Substance: PREDNISOLONE ACETATE
     Indication: CATARACT
     Dosage: 3 DROP (1 DROP ,3 IN 1 D)
     Route: 047
     Dates: start: 20190826
  12. IMOVANE [Concomitant]
     Active Substance: ZOPICLONE
     Indication: SLEEP DISORDER DUE TO A GENERAL MEDICAL CONDITION
     Dosage: 1 AS REQUIRED
     Dates: start: 20200128

REACTIONS (2)
  - Blindness [Not Recovered/Not Resolved]
  - Glaucoma [Not Recovered/Not Resolved]

NARRATIVE: CASE EVENT DATE: 20210521
